FAERS Safety Report 8775415 (Version 3)
Quarter: 2013Q1

REPORT INFORMATION
  Report Type: Spontaneous
  Country: US (occurrence: US)
  Receive Date: 20120909
  Receipt Date: 20130120
  Transmission Date: 20140127
  Serious: No
  Sender: FDA-Public Use
  Company Number: US-009507513-1209USA001302

PATIENT
  Age: 67 Year
  Sex: Male

DRUGS (9)
  1. ASMANEX TWISTHALER [Suspect]
     Indication: CHRONIC OBSTRUCTIVE PULMONARY DISEASE
     Dosage: ONE PUFF, QD
     Route: 055
     Dates: start: 20120824
  2. ALBUTEROL [Concomitant]
  3. ACCOLATE [Concomitant]
  4. DIOVAN [Concomitant]
  5. CRESTOR [Concomitant]
  6. XOPENEX [Concomitant]
  7. POTASSIUM (UNSPECIFIED) [Concomitant]
  8. LASIX (FUROSEMIDE) [Concomitant]
  9. PREDNISONE [Concomitant]

REACTIONS (5)
  - Somnolence [Not Recovered/Not Resolved]
  - Paraesthesia [Not Recovered/Not Resolved]
  - Chills [Not Recovered/Not Resolved]
  - Device malfunction [Not Recovered/Not Resolved]
  - Drug dose omission [Unknown]
